FAERS Safety Report 9150528 (Version 1)
Quarter: 2013Q1

REPORT INFORMATION
  Report Type: Spontaneous
  Country: US (occurrence: US)
  Receive Date: 20130308
  Receipt Date: 20130308
  Transmission Date: 20140127
  Serious: No
  Sender: FDA-Public Use
  Company Number: US-ENDO PHARMACEUTICALS INC.-OPCR20121130

PATIENT
  Sex: Male

DRUGS (7)
  1. OPANA ER [Suspect]
     Indication: BACK PAIN
     Route: 048
     Dates: start: 201204
  2. OPANA ER [Suspect]
     Indication: ARTHRALGIA
  3. OPANA ER [Suspect]
     Indication: PAIN IN EXTREMITY
  4. OPANA ER [Concomitant]
     Indication: BACK PAIN
     Route: 048
     Dates: start: 201010, end: 201204
  5. OPANA ER [Concomitant]
     Indication: ARTHRALGIA
  6. OPANA ER [Concomitant]
     Indication: PAIN IN EXTREMITY
  7. ROXICODONE [Concomitant]
     Indication: BREAKTHROUGH PAIN
     Dosage: UNK

REACTIONS (2)
  - Medication residue present [Not Recovered/Not Resolved]
  - Drug ineffective [Not Recovered/Not Resolved]
